FAERS Safety Report 13759683 (Version 1)
Quarter: 2017Q3

REPORT INFORMATION
  Report Type: Report from Study
  Country: FR (occurrence: FR)
  Receive Date: 20170717
  Receipt Date: 20170717
  Transmission Date: 20171127
  Serious: Yes (Death, Other)
  Sender: FDA-Public Use
  Company Number: FR-CELGENEUS-FRA-20170701658

PATIENT

DRUGS (1)
  1. REVLIMID [Suspect]
     Active Substance: LENALIDOMIDE
     Indication: PLASMA CELL MYELOMA RECURRENT
     Route: 048

REACTIONS (8)
  - Death [Fatal]
  - Adverse event [Unknown]
  - Thrombosis [Unknown]
  - Plasma cell myeloma [Unknown]
  - Therapy non-responder [Unknown]
  - Therapeutic response decreased [Unknown]
  - Haematotoxicity [Unknown]
  - Fatigue [Unknown]
